FAERS Safety Report 5956799-6 (Version None)
Quarter: 2008Q4

REPORT INFORMATION
  Report Type: 
  Country: None (occurrence: None)
  Receive Date: 20081118
  Receipt Date: 20081114
  Transmission Date: 20090506
  Serious: Yes (Other)
  Sender: FDA-Public Use
  Company Number: AU-ASTRAZENECA-2008AP07837

PATIENT
  Age: 22291 Day
  Sex: Female
  Weight: 75 kg

DRUGS (2)
  1. CRESTOR [Suspect]
     Indication: HYPERCHOLESTEROLAEMIA
     Route: 048
     Dates: start: 20071123, end: 20080314
  2. SOTALOL HCL [Concomitant]
     Dates: start: 20060901

REACTIONS (2)
  - PAIN IN EXTREMITY [None]
  - RASH [None]
